FAERS Safety Report 9257329 (Version 2)
Quarter: 2013Q2

REPORT INFORMATION
  Report Type: Spontaneous
  Country: US (occurrence: US)
  Receive Date: 20130426
  Receipt Date: 20130522
  Transmission Date: 20140414
  Serious: Yes (Hospitalization)
  Sender: FDA-Public Use
  Company Number: US-BAYER-2013-051470

PATIENT
  Age: 50 Year
  Sex: Female
  Weight: 63.04 kg

DRUGS (4)
  1. YAZ [Suspect]
     Dosage: UNK
     Dates: start: 200903
  2. YASMIN [Suspect]
     Indication: MENORRHAGIA
     Dosage: UNK
     Dates: start: 200903
  3. ZOLOFT [Concomitant]
  4. RETEPLASE [Concomitant]

REACTIONS (9)
  - Deep vein thrombosis [None]
  - Deep vein thrombosis [None]
  - Pelvic venous thrombosis [Recovered/Resolved]
  - Injury [None]
  - Anxiety [None]
  - Pain [None]
  - General physical health deterioration [None]
  - Emotional distress [None]
  - Pain [None]
